FAERS Safety Report 5940123-9 (Version None)
Quarter: 2008Q4

REPORT INFORMATION
  Report Type: 
  Country: None (occurrence: None)
  Receive Date: 20081104
  Receipt Date: 20081024
  Transmission Date: 20090506
  Serious: Yes (Other)
  Sender: FDA-Public Use
  Company Number: CA-JNJFOC-20081006643

PATIENT
  Sex: Female
  Weight: 115 kg

DRUGS (3)
  1. REMICADE [Suspect]
     Indication: DRUG USE FOR UNKNOWN INDICATION
     Route: 042
  2. ADVIL [Concomitant]
  3. ENDOCORT [Concomitant]

REACTIONS (2)
  - CHOROID MELANOMA [None]
  - CROHN'S DISEASE [None]
